FAERS Safety Report 7951611-8 (Version None)
Quarter: 2011Q4

REPORT INFORMATION
  Report Type: 
  Country: None (occurrence: None)
  Receive Date: 20111201
  Receipt Date: 20111121
  Transmission Date: 20120403
  Serious: Yes (Hospitalization, Disabling, Other)
  Sender: FDA-Public Use
  Company Number: CA-CELGENEUS-028-21880-11111347

PATIENT
  Sex: Male

DRUGS (15)
  1. GLICLAZIDE [Concomitant]
     Dosage: 30 MILLIGRAM
     Route: 065
  2. RAMIPRIL [Concomitant]
     Route: 065
  3. LECITHIN [Concomitant]
     Route: 065
  4. ACTONEL [Concomitant]
     Indication: OSTEOPOROSIS
     Dosage: 150
     Route: 065
  5. VITAMIN A [Concomitant]
     Route: 065
  6. RISPERIDONE [Concomitant]
     Dosage: .25
     Route: 065
  7. REVLIMID [Suspect]
     Indication: MULTIPLE MYELOMA
     Dosage: 25 MILLIGRAM
     Route: 048
     Dates: start: 20090328, end: 20111105
  8. RABEPRAZOLE SODIUM [Concomitant]
     Dosage: 20 MILLIGRAM
     Route: 048
  9. DEXAMETHASONE [Concomitant]
     Dosage: 40 MILLIGRAM
     Route: 065
  10. ASPIRIN [Concomitant]
     Indication: PROPHYLAXIS
     Dosage: 81 MILLIGRAM
     Route: 065
  11. SITAGLIPTIN [Concomitant]
     Route: 065
  12. VITAMIN D [Concomitant]
     Route: 065
  13. METFORMIN HCL [Concomitant]
     Route: 065
  14. CALCIUM PLUS MAGNESIUM [Concomitant]
     Route: 065
  15. VITAMIN B50 COMPLEX [Concomitant]
     Route: 065

REACTIONS (5)
  - DEMENTIA [None]
  - BLOOD POTASSIUM DECREASED [None]
  - VITAMIN B12 DECREASED [None]
  - WEIGHT DECREASED [None]
  - HAEMOGLOBIN DECREASED [None]
